FAERS Safety Report 6805548-8 (Version None)
Quarter: 2010Q2

REPORT INFORMATION
  Report Type: 
  Country: None (occurrence: None)
  Receive Date: 20100628
  Receipt Date: 20071226
  Transmission Date: 20101027
  Serious: No
  Sender: FDA-Public Use
  Company Number: US-PFIZER INC-2007108443

PATIENT
  Sex: Female
  Weight: 45.454 kg

DRUGS (2)
  1. XALATAN [Suspect]
     Dates: start: 20071201
  2. PREDNISOLONE [Concomitant]
     Indication: ARTHRITIS
     Route: 048
     Dates: start: 19670101

REACTIONS (3)
  - DRY EYE [None]
  - FOREIGN BODY SENSATION IN EYES [None]
  - VISION BLURRED [None]
